FAERS Safety Report 12824755 (Version 1)
Quarter: 2016Q4

REPORT INFORMATION
  Report Type: Spontaneous
  Country: US (occurrence: US)
  Receive Date: 20161007
  Receipt Date: 20161007
  Transmission Date: 20170207
  Serious: No
  Sender: FDA-Public Use
  Company Number: US-TEVA-691996ACC

PATIENT
  Age: 24 Year
  Sex: Female
  Weight: 78.09 kg

DRUGS (3)
  1. CRANBERRY. [Concomitant]
     Active Substance: CRANBERRY
  2. MULTIVITAMIN [Concomitant]
     Active Substance: VITAMINS
  3. PARAGARD T 380A [Suspect]
     Active Substance: COPPER
     Indication: CONTRACEPTION
     Dates: start: 20160809

REACTIONS (5)
  - Migraine [Recovered/Resolved]
  - Menstruation delayed [Not Recovered/Not Resolved]
  - Muscle spasms [Not Recovered/Not Resolved]
  - Vaginal haemorrhage [Not Recovered/Not Resolved]
  - Fatigue [Not Recovered/Not Resolved]

NARRATIVE: CASE EVENT DATE: 20160825
